FAERS Safety Report 4986901-4 (Version None)
Quarter: 2006Q2

REPORT INFORMATION
  Report Type: 
  Country: None (occurrence: None)
  Receive Date: 20060501
  Receipt Date: 20060419
  Transmission Date: 20061013
  Serious: Yes (Other)
  Sender: FDA-Public Use
  Company Number: PHBS2006SE05669

PATIENT
  Sex: Female

DRUGS (6)
  1. AREDIA [Suspect]
     Indication: MULTIPLE MYELOMA
     Dosage: 90 MG, UNK
     Route: 065
     Dates: start: 20050122
  2. BETAPRED [Concomitant]
     Route: 065
  3. VOLTAREN [Concomitant]
     Route: 065
  4. OMEPRAZOL [Concomitant]
     Route: 065
  5. DOLCONTIN [Concomitant]
     Route: 065
  6. OXASCAND [Concomitant]
     Route: 065

REACTIONS (1)
  - OSTEONECROSIS [None]
